FAERS Safety Report 16098926 (Version 1)
Quarter: 2019Q1

REPORT INFORMATION
  Report Type: Spontaneous
  Country: US (occurrence: US)
  Receive Date: 20190321
  Receipt Date: 20190321
  Transmission Date: 20190418
  Serious: No
  Sender: FDA-Public Use
  Company Number: US-PFIZER INC-2019123318

PATIENT
  Age: 66 Year
  Sex: Female
  Weight: 77.55 kg

DRUGS (5)
  1. TRAMADOL. [Suspect]
     Active Substance: TRAMADOL
     Indication: PARAESTHESIA
  2. TRAMADOL. [Suspect]
     Active Substance: TRAMADOL
     Indication: PARAESTHESIA
  3. TRAMADOL. [Suspect]
     Active Substance: TRAMADOL
     Indication: PAIN
     Dosage: 50 MG, 2X/DAY (50 MG ONE TABLET TWICE A DAY AS NEEDED)
  4. IBUPROFEN. [Suspect]
     Active Substance: IBUPROFEN
     Indication: PARAESTHESIA
     Dosage: UNK
  5. IBUPROFEN. [Suspect]
     Active Substance: IBUPROFEN
     Indication: PARAESTHESIA

REACTIONS (1)
  - Drug ineffective for unapproved indication [Unknown]
